FAERS Safety Report 10074703 (Version 1)
Quarter: 2014Q2

REPORT INFORMATION
  Report Type: Spontaneous
  Country: US (occurrence: US)
  Receive Date: 20140414
  Receipt Date: 20140414
  Transmission Date: 20141212
  Serious: Yes (Congenital Anomaly, Other)
  Sender: FDA-Public Use
  Company Number: US-JNJFOC-20140407949

PATIENT
  Sex: Male

DRUGS (24)
  1. TOPAMAX [Suspect]
     Indication: MIGRAINE
     Route: 064
  2. TOPAMAX [Suspect]
     Indication: HEADACHE
     Route: 064
  3. TOPAMAX [Suspect]
     Indication: ANXIETY
     Route: 064
  4. TOPAMAX [Suspect]
     Indication: DEPRESSION
     Route: 064
  5. MAXALT [Suspect]
     Indication: MIGRAINE
     Route: 064
  6. ZOLOFT [Suspect]
     Indication: ANXIETY
     Route: 064
  7. ZOLOFT [Suspect]
     Indication: DEPRESSION
     Route: 064
  8. DOXEPIN [Suspect]
     Indication: PRODUCT USED FOR UNKNOWN INDICATION
     Route: 064
  9. MECLIZINE [Suspect]
     Indication: PRODUCT USED FOR UNKNOWN INDICATION
     Route: 064
  10. HYDROXYZINE PAMOATE [Suspect]
     Indication: PRODUCT USED FOR UNKNOWN INDICATION
     Route: 064
  11. ZITHROMAX [Suspect]
     Indication: PRODUCT USED FOR UNKNOWN INDICATION
     Route: 064
  12. SULFAMETHOXAZOLE/TRIMETHOPRIM [Suspect]
     Indication: PRODUCT USED FOR UNKNOWN INDICATION
     Route: 064
  13. AMITRIPTYLINE HCL [Suspect]
     Indication: PRODUCT USED FOR UNKNOWN INDICATION
     Route: 064
  14. PRIMACARE [Suspect]
     Indication: PRODUCT USED FOR UNKNOWN INDICATION
     Route: 064
  15. ERY-TAB [Suspect]
     Indication: PRODUCT USED FOR UNKNOWN INDICATION
     Route: 064
  16. AMOXICILLIN [Suspect]
     Indication: FURUNCLE
     Route: 064
  17. SPIRONOLACTONE [Suspect]
     Indication: PRODUCT USED FOR UNKNOWN INDICATION
     Route: 064
  18. IBUPROFEN [Suspect]
     Indication: PRODUCT USED FOR UNKNOWN INDICATION
     Route: 064
  19. PHENAZOPYRIDINE [Suspect]
     Indication: PRODUCT USED FOR UNKNOWN INDICATION
     Route: 064
  20. ZYRTEC [Suspect]
     Route: 064
  21. ZYRTEC [Suspect]
     Indication: PRODUCT USED FOR UNKNOWN INDICATION
     Route: 064
  22. FERROUS SULFATE [Concomitant]
     Indication: PRODUCT USED FOR UNKNOWN INDICATION
     Route: 064
  23. IRON [Concomitant]
     Indication: PRODUCT USED FOR UNKNOWN INDICATION
     Route: 064
  24. PRENATAL VITAMINS [Concomitant]
     Indication: PRODUCT USED FOR UNKNOWN INDICATION
     Route: 064

REACTIONS (3)
  - Ear disorder [Unknown]
  - Foetal exposure during pregnancy [Recovered/Resolved]
  - Aggression [Unknown]
